FAERS Safety Report 6439181-7 (Version None)
Quarter: 2009Q4

REPORT INFORMATION
  Report Type: 
  Country: None (occurrence: None)
  Receive Date: 20091110
  Receipt Date: 20091026
  Transmission Date: 20100525
  Serious: Yes (Other)
  Sender: FDA-Public Use
  Company Number: 2009AC000149

PATIENT
  Age: 56 Year
  Sex: Male

DRUGS (12)
  1. DIGOXIN [Suspect]
     Dosage: 0.125 MG; PO
     Route: 048
     Dates: start: 19981001, end: 20080401
  2. ASACOL [Concomitant]
  3. CLOTRIMAZOLE [Concomitant]
  4. LEVITRA [Concomitant]
  5. PAROXETINE HCL [Concomitant]
  6. METHYLPREDNISOLONE [Concomitant]
  7. CLOTRIMAZOLE/BETAMETH [Concomitant]
  8. LORAZEPAM [Concomitant]
  9. PAROXETINE [Concomitant]
  10. SILVER SULFA [Concomitant]
  11. NEURONTIN [Concomitant]
  12. CLONAZEPAM [Concomitant]

REACTIONS (2)
  - INJURY [None]
  - OVERDOSE [None]
